FAERS Safety Report 26170575 (Version 1)
Quarter: 2025Q4

REPORT INFORMATION
  Report Type: Spontaneous
  Country: US (occurrence: US)
  Receive Date: 20251217
  Receipt Date: 20251217
  Transmission Date: 20260119
  Serious: No
  Sender: ALVOGEN
  Company Number: US-ALVOGEN-2025097717

PATIENT
  Age: 60 Year
  Sex: Male

DRUGS (2)
  1. FENTANYL [Suspect]
     Active Substance: FENTANYL
     Indication: Back pain
     Dosage: HE TOOK 100 MG PATCHES EVERY OTHER DAY
     Dates: start: 2025
  2. FENTANYL [Suspect]
     Active Substance: FENTANYL
     Indication: Back pain
     Dosage: THEN WENT DOWN TO 50 MCG/HR PATCHES EVERY OTHER DAY, EXPIRATION DATE: MAY-2027
     Dates: start: 2025

REACTIONS (4)
  - Drug effect less than expected [Unknown]
  - Device physical property issue [Unknown]
  - Device malfunction [Unknown]
  - Device issue [Unknown]

NARRATIVE: CASE EVENT DATE: 20250101
